FAERS Safety Report 20946712 (Version 1)
Quarter: 2022Q2

REPORT INFORMATION
  Report Type: Spontaneous
  Country: CN (occurrence: CN)
  Receive Date: 20220610
  Receipt Date: 20220610
  Transmission Date: 20220721
  Serious: Yes (Other)
  Sender: FDA-Public Use
  Company Number: CN-NOVARTISPH-NVSC2022CN133340

PATIENT
  Age: 44 Year
  Sex: Male
  Weight: 65 kg

DRUGS (1)
  1. AMLODIPINE BESYLATE\VALSARTAN [Suspect]
     Active Substance: AMLODIPINE BESYLATE\VALSARTAN
     Indication: Hypertension
     Dosage: 160 MG, QD (2 TABLETS)
     Route: 048
     Dates: start: 20220404, end: 20220422

REACTIONS (5)
  - Gingival hypertrophy [Recovering/Resolving]
  - Gingival bleeding [Recovering/Resolving]
  - Gingival erosion [Recovering/Resolving]
  - Tooth disorder [Recovering/Resolving]
  - Mouth haemorrhage [Recovering/Resolving]

NARRATIVE: CASE EVENT DATE: 20220411
